FAERS Safety Report 15181113 (Version 2)
Quarter: 2018Q3

REPORT INFORMATION
  Report Type: Spontaneous
  Country: US (occurrence: US)
  Receive Date: 20180723
  Receipt Date: 20180725
  Transmission Date: 20181010
  Serious: Yes (Death)
  Sender: FDA-Public Use
  Company Number: US-PFIZER INC-2018294118

PATIENT
  Age: 2 Year
  Weight: 12 kg

DRUGS (4)
  1. PENTOBARBITAL SODIUM. [Concomitant]
     Active Substance: PENTOBARBITAL SODIUM
     Dosage: UNK
  2. BENZOCAINE. [Concomitant]
     Active Substance: BENZOCAINE
     Dosage: UNK
  3. AMINOPHYLLINE. [Suspect]
     Active Substance: AMINOPHYLLINE
     Indication: BRONCHITIS
  4. AMINOPHYLLINE. [Suspect]
     Active Substance: AMINOPHYLLINE
     Indication: ASTHMA
     Dosage: 21 MG/KG, (STAT)
     Route: 054

REACTIONS (4)
  - Toxicity to various agents [Fatal]
  - Gait disturbance [Unknown]
  - Vomiting [Unknown]
  - Pallor [Unknown]
